FAERS Safety Report 8973919 (Version 1)
Quarter: 2012Q4

REPORT INFORMATION
  Report Type: 
  Country: CH (occurrence: CH)
  Receive Date: 20121218
  Receipt Date: 20121218
  Transmission Date: 20130627
  Serious: Yes (Other)
  Sender: FDA-Public Use
  Company Number: PHHY2012CH116281

PATIENT
  Age: 75 Year
  Sex: Female

DRUGS (2)
  1. ALENDRONIC ACID [Suspect]
     Indication: MULTIPLE FRACTURES
  2. ALENDRONIC ACID [Suspect]
     Indication: OSTEOPOROSIS

REACTIONS (5)
  - Fall [Recovered/Resolved]
  - Atypical femur fracture [Recovered/Resolved]
  - Limb deformity [Recovered/Resolved]
  - Pain [Recovered/Resolved]
  - Pain in extremity [Recovered/Resolved]
